FAERS Safety Report 25144009 (Version 1)
Quarter: 2025Q2

REPORT INFORMATION
  Report Type: Spontaneous
  Country: US (occurrence: US)
  Receive Date: 20250401
  Receipt Date: 20250401
  Transmission Date: 20250716
  Serious: Yes (Other)
  Sender: AUROBINDO
  Company Number: US-AUROBINDO-AUR-APL-2025-016472

PATIENT
  Age: 66 Year
  Sex: Female

DRUGS (5)
  1. ACYCLOVIR [Suspect]
     Active Substance: ACYCLOVIR
     Indication: Product used for unknown indication
     Route: 042
  2. ACYCLOVIR [Suspect]
     Active Substance: ACYCLOVIR
     Dosage: 800 MILLIGRAM, FOUR TIMES/DAY
     Route: 048
  3. PREDNISONE [Suspect]
     Active Substance: PREDNISONE
     Indication: Product used for unknown indication
     Route: 065
  4. CLOPIDOGREL [Suspect]
     Active Substance: CLOPIDOGREL BISULFATE
     Indication: Product used for unknown indication
     Route: 065
  5. ASPIRIN [Suspect]
     Active Substance: ASPIRIN
     Indication: Product used for unknown indication
     Route: 065

REACTIONS (1)
  - Ischaemic stroke [Unknown]
